FAERS Safety Report 9852596 (Version 3)
Quarter: 2014Q1

REPORT INFORMATION
  Report Type: Spontaneous
  Country: FR (occurrence: FR)
  Receive Date: 20140129
  Receipt Date: 20140227
  Transmission Date: 20141002
  Serious: Yes (Other)
  Sender: FDA-Public Use
  Company Number: FR-TEVA-455567ISR

PATIENT
  Age: 21 Year
  Sex: Female

DRUGS (2)
  1. LEELOO 0.1MG/0.02MG [Suspect]
     Indication: ORAL CONTRACEPTION
     Dosage: 1 DOSAGE FORMS DAILY; ETHINYLESTRADIOL 0.1MG, LEVONORGESTREL 0.02MG
     Route: 048
     Dates: start: 201301, end: 201302
  2. LEELOO 0.1MG/0.02MG [Suspect]
     Dosage: 1 DOSAGE FORMS DAILY;
     Route: 048
     Dates: start: 201304, end: 201307

REACTIONS (6)
  - Pregnancy on oral contraceptive [Unknown]
  - Abortion spontaneous [Unknown]
  - Drug ineffective [Recovered/Resolved]
  - Unwanted pregnancy [Recovered/Resolved]
  - Gastroenteritis [Unknown]
  - Vomiting [Unknown]
